FAERS Safety Report 21759094 (Version 1)
Quarter: 2022Q4

REPORT INFORMATION
  Report Type: Report from Study
  Country: US (occurrence: US)
  Receive Date: 20221221
  Receipt Date: 20221221
  Transmission Date: 20230113
  Serious: Yes (Other)
  Sender: FDA-Public Use
  Company Number: US-ABBVIE-4243466

PATIENT
  Sex: Male

DRUGS (1)
  1. IMBRUVICA [Suspect]
     Active Substance: IBRUTINIB
     Indication: Chronic lymphocytic leukaemia
     Dosage: EVENT ONSET FOR SKIN CANCER AND SKIN DISORDER SHOULD BE 2022.?EVENT ONSET AND CESSATION DATE FOR ...
     Route: 048
     Dates: start: 20220610

REACTIONS (3)
  - Skin cancer [Not Recovered/Not Resolved]
  - Skin disorder [Not Recovered/Not Resolved]
  - Localised infection [Recovered/Resolved]
